FAERS Safety Report 23973182 (Version 2)
Quarter: 2024Q3

REPORT INFORMATION
  Report Type: Report from Study
  Country: DE (occurrence: DE)
  Receive Date: 20240613
  Receipt Date: 20240701
  Transmission Date: 20241017
  Serious: Yes (Other)
  Sender: KYOWA
  Company Number: DE-KYOWAKIRIN-2024KK014347

PATIENT

DRUGS (2)
  1. BUROSUMAB [Suspect]
     Active Substance: BUROSUMAB
     Indication: Hereditary hypophosphataemic rickets
     Dosage: 7 MG
     Route: 058
     Dates: start: 20180411
  2. BUROSUMAB [Suspect]
     Active Substance: BUROSUMAB
     Dosage: 30 MG
     Route: 058
     Dates: start: 20240529

REACTIONS (8)
  - Deafness [Not Recovered/Not Resolved]
  - Tinnitus [Not Recovered/Not Resolved]
  - Balance disorder [Recovered/Resolved]
  - Cold sweat [Not Recovered/Not Resolved]
  - Tremor [Unknown]
  - Ear disorder [Unknown]
  - Vomiting [Not Recovered/Not Resolved]
  - Dizziness [Not Recovered/Not Resolved]

NARRATIVE: CASE EVENT DATE: 20240601
